FAERS Safety Report 7632818-6 (Version None)
Quarter: 2011Q3

REPORT INFORMATION
  Report Type: 
  Country: None (occurrence: None)
  Receive Date: 20110725
  Receipt Date: 20110715
  Transmission Date: 20111222
  Serious: Yes (Other)
  Sender: FDA-Public Use
  Company Number: GB-TEVA-291738ISR

PATIENT
  Age: 70 Year
  Sex: Male

DRUGS (1)
  1. METFORMIN HCL [Suspect]
     Indication: PSORIASIS

REACTIONS (6)
  - BLOOD PRESSURE FLUCTUATION [None]
  - PROSTATOMEGALY [None]
  - ORTHOSTATIC HYPOTENSION [None]
  - TREMOR [None]
  - BLADDER OBSTRUCTION [None]
  - DIZZINESS [None]
